FAERS Safety Report 6681141-5 (Version None)
Quarter: 2010Q2

REPORT INFORMATION
  Report Type: 
  Country: None (occurrence: None)
  Receive Date: 20100414
  Receipt Date: 20100402
  Transmission Date: 20101027
  Serious: Yes (Hospitalization)
  Sender: FDA-Public Use
  Company Number: BE-ASTRAZENECA-2010SE14605

PATIENT
  Age: 30 Year
  Sex: Male

DRUGS (5)
  1. SEROQUEL [Suspect]
     Indication: BIPOLAR DISORDER
     Route: 048
     Dates: start: 20090101
  2. SEROQUEL [Suspect]
     Route: 048
  3. SEROXAT [Suspect]
  4. METHADON [Concomitant]
     Indication: DRUG ABUSE
  5. LORAZEPAM [Concomitant]
     Indication: INSOMNIA

REACTIONS (2)
  - OVERDOSE [None]
  - SUICIDE ATTEMPT [None]
